FAERS Safety Report 4973742-7 (Version None)
Quarter: 2006Q2

REPORT INFORMATION
  Report Type: 
  Country: None (occurrence: None)
  Receive Date: 20060414
  Receipt Date: 20051230
  Transmission Date: 20061013
  Serious: Yes (Hospitalization, Disabling)
  Sender: FDA-Public Use
  Company Number: US-MERCK-0601USA00153

PATIENT
  Age: 37 Year
  Sex: Female
  Weight: 136 kg

DRUGS (5)
  1. VIOXX [Suspect]
     Indication: PAIN
     Route: 048
  2. VIOXX [Suspect]
     Route: 048
  3. VIOXX [Suspect]
     Route: 048
  4. VIOXX [Suspect]
     Route: 048
  5. TYLENOL (CAPLET) [Concomitant]
     Route: 065

REACTIONS (24)
  - ABDOMINAL PAIN LOWER [None]
  - ANAEMIA [None]
  - ARTHRALGIA [None]
  - ATRIAL FLUTTER [None]
  - CARDIOVASCULAR DISORDER [None]
  - COLITIS [None]
  - DEEP VEIN THROMBOSIS [None]
  - DYSFUNCTIONAL UTERINE BLEEDING [None]
  - DYSPNOEA [None]
  - FALL [None]
  - FATIGUE [None]
  - FOOD CRAVING [None]
  - HAEMATURIA [None]
  - HYPERCOAGULATION [None]
  - INCREASED TENDENCY TO BRUISE [None]
  - IRON DEFICIENCY ANAEMIA [None]
  - JOINT DISLOCATION [None]
  - NAUSEA [None]
  - OEDEMA PERIPHERAL [None]
  - OSTEOARTHRITIS [None]
  - PAIN IN EXTREMITY [None]
  - SPLENOMEGALY [None]
  - VOMITING [None]
  - WEIGHT DECREASED [None]
